FAERS Safety Report 7814991-X (Version None)
Quarter: 2011Q4

REPORT INFORMATION
  Report Type: 
  Country: None (occurrence: None)
  Receive Date: 20111014
  Receipt Date: 20111006
  Transmission Date: 20120403
  Serious: Yes (Hospitalization)
  Sender: FDA-Public Use
  Company Number: US-GLAXOSMITHKLINE-A0947980A

PATIENT
  Age: 63 Year
  Sex: Female

DRUGS (3)
  1. HYDROCHLOROTHIAZIDE [Concomitant]
  2. AVANDIA [Suspect]
     Indication: TYPE 2 DIABETES MELLITUS
     Route: 048
     Dates: start: 20061101, end: 20091101
  3. METFORMIN HYDROCHLORIDE [Concomitant]

REACTIONS (6)
  - AMNESIA [None]
  - LOSS OF CONSCIOUSNESS [None]
  - CARDIOVERSION [None]
  - ADVERSE EVENT [None]
  - DISABILITY [None]
  - COMA [None]
